FAERS Safety Report 10469422 (Version 2)
Quarter: 2014Q3

REPORT INFORMATION
  Report Type: Spontaneous
  Country: None (occurrence: US)
  Receive Date: 20140923
  Receipt Date: 20140923
  Transmission Date: 20150326
  Serious: Yes (Other)
  Sender: FDA-Public Use
  Company Number: US-TEVA-496386USA

PATIENT
  Age: 65 Year
  Sex: Male

DRUGS (1)
  1. CLONIDINE. [Suspect]
     Active Substance: CLONIDINE
     Indication: HYPERTENSION
     Dosage: 0.1 MG/DAY
     Route: 062

REACTIONS (7)
  - Application site irritation [Unknown]
  - Hypersensitivity [Unknown]
  - Application site rash [Recovered/Resolved]
  - Application site discolouration [Unknown]
  - Application site haemorrhage [Unknown]
  - Application site ulcer [Recovered/Resolved]
  - Application site hypersensitivity [Unknown]

NARRATIVE: CASE EVENT DATE: 20140430
